FAERS Safety Report 13656313 (Version 1)
Quarter: 2017Q2

REPORT INFORMATION
  Report Type: Spontaneous
  Country: GB (occurrence: GB)
  Receive Date: 20170615
  Receipt Date: 20170615
  Transmission Date: 20170830
  Serious: Yes (Hospitalization)
  Sender: FDA-Public Use
  Company Number: GB-PFIZER INC-2017258038

PATIENT
  Age: 64 Year

DRUGS (17)
  1. OLMESARTAN [Suspect]
     Active Substance: OLMESARTAN
     Dosage: UNK UNK, QD
     Route: 048
  2. STRYCHNOS NUX-VOMICA [Suspect]
     Active Substance: HERBALS\STRYCHNOS NUX-VOMICA SEED
     Dosage: UNK
     Route: 065
  3. CO-TENIDONE [Suspect]
     Active Substance: ATENOLOL\CHLORTHALIDONE
     Dosage: 50/12.5MG, QD
     Route: 048
  4. HYDROCHLOROTHIAZIDE. [Suspect]
     Active Substance: HYDROCHLOROTHIAZIDE
     Dosage: UNK UNK, QD
     Route: 048
  5. SYZYGIUM CUMINI [Suspect]
     Active Substance: HERBALS
     Dosage: UNK
     Route: 065
  6. METFORMIN HCL [Suspect]
     Active Substance: METFORMIN HYDROCHLORIDE
     Dosage: 1 G, BID
     Route: 048
  7. CLARITHROMYCIN. [Suspect]
     Active Substance: CLARITHROMYCIN
     Dosage: 500 MG, BID
     Route: 048
  8. TRIGONELLA FOENUM-GRAECUM [Suspect]
     Active Substance: FENUGREEK LEAF\HERBALS
     Dosage: UNK
     Route: 065
  9. SWERTIA CHIRATA [Suspect]
     Active Substance: HERBALS
     Dosage: UNK
     Route: 065
  10. TURMERIC /01079602/ [Suspect]
     Active Substance: HERBALS\TURMERIC
     Dosage: UNK
     Route: 065
  11. CURCUMA ZEDOARIA [Suspect]
     Active Substance: HERBALS
     Dosage: UNK
     Route: 065
  12. TINOSPORA CORDIFOLIA [Suspect]
     Active Substance: HERBALS
     Dosage: UNK
     Route: 065
  13. AMOXICILLIN. [Suspect]
     Active Substance: AMOXICILLIN
     Dosage: 1 G, BID
     Route: 048
  14. NYTOL [Suspect]
     Active Substance: DIPHENHYDRAMINE HYDROCHLORIDE
     Dosage: 25 MG, QD
     Route: 048
  15. PANTOPRAZOLE [Suspect]
     Active Substance: PANTOPRAZOLE
     Dosage: 20 MG, BID
     Route: 048
  16. GYMNEMA SYLVESTRE /08964301/ [Suspect]
     Active Substance: HERBALS
     Dosage: UNK
     Route: 065
  17. KALMS /00796301/ [Suspect]
     Active Substance: HERBALS
     Dosage: UNK UNK, TID
     Route: 048

REACTIONS (1)
  - Hyponatraemia [Recovered/Resolved]
